FAERS Safety Report 25719046 (Version 5)
Quarter: 2025Q4

REPORT INFORMATION
  Report Type: Report from Study
  Country: CO (occurrence: CO)
  Receive Date: 20250823
  Receipt Date: 20251129
  Transmission Date: 20260118
  Serious: Yes (Hospitalization, Other)
  Sender: TAKEDA
  Company Number: CO-TAKEDA-2025TUS062755

PATIENT
  Age: 63 Year
  Sex: Male
  Weight: 81 kg

DRUGS (6)
  1. IXAZOMIB [Suspect]
     Active Substance: IXAZOMIB
     Indication: Plasma cell myeloma
     Dosage: 4 MILLIGRAM
  2. IXAZOMIB [Suspect]
     Active Substance: IXAZOMIB
     Dosage: 2.3 MILLIGRAM
  3. IXAZOMIB [Suspect]
     Active Substance: IXAZOMIB
     Dosage: UNK
  4. IXAZOMIB [Suspect]
     Active Substance: IXAZOMIB
     Dosage: 4 MILLIGRAM
  5. IXAZOMIB [Suspect]
     Active Substance: IXAZOMIB
     Dosage: 4 MILLIGRAM
  6. DEXAMETHASONE [Suspect]
     Active Substance: DEXAMETHASONE
     Indication: Plasma cell myeloma
     Dosage: 8 MILLIGRAM

REACTIONS (15)
  - Malaise [Unknown]
  - Anaemia [Unknown]
  - Asthenia [Unknown]
  - Haemoglobin abnormal [Unknown]
  - Respiratory tract infection [Unknown]
  - Gastroenteritis [Unknown]
  - Pneumonia [Recovering/Resolving]
  - Pain [Unknown]
  - Chest pain [Recovering/Resolving]
  - Chest discomfort [Unknown]
  - Chills [Unknown]
  - Tachycardia [Unknown]
  - Stomatitis [Unknown]
  - Inappropriate schedule of product administration [Unknown]
  - Diarrhoea [Recovering/Resolving]

NARRATIVE: CASE EVENT DATE: 20250604
